FAERS Safety Report 5874603-1 (Version None)
Quarter: 2008Q3

REPORT INFORMATION
  Report Type: 
  Country: None (occurrence: None)
  Receive Date: 20080905
  Receipt Date: 20080905
  Transmission Date: 20090109
  Serious: No
  Sender: FDA-Public Use
  Company Number: None

PATIENT
  Age: 34 Year
  Sex: Male
  Weight: 138.8007 kg

DRUGS (1)
  1. OXYCODONE AND ACETAMINOPHEN [Suspect]
     Indication: BREAKTHROUGH PAIN
     Dosage: ONE OR TWO Q6 TO 8 HOURS PO
     Route: 048
     Dates: start: 20080829, end: 20080906

REACTIONS (1)
  - DRUG INEFFECTIVE [None]
